FAERS Safety Report 9451042 (Version 1)
Quarter: 2013Q3

REPORT INFORMATION
  Report Type: Spontaneous
  Country: FR (occurrence: None)
  Receive Date: 20130807
  Receipt Date: 20130807
  Transmission Date: 20140515
  Serious: Yes (Disabling)
  Sender: FDA-Public Use
  Company Number: ENTC2013-0283

PATIENT
  Age: 75 Year
  Sex: Female

DRUGS (5)
  1. STALEVO [Suspect]
     Indication: PARKINSON^S DISEASE
     Dosage: 4 DF QD, STRENGTH: 150/37.5/200 MG
     Route: 048
     Dates: start: 201012
  2. KARDEGIC [Concomitant]
  3. MELAXOSE [Concomitant]
  4. EDUCTYL [Concomitant]
  5. FLUIDABAK [Concomitant]

REACTIONS (2)
  - Raynaud^s phenomenon [None]
  - Skin fissures [None]
